FAERS Safety Report 5018069-2 (Version None)
Quarter: 2006Q2

REPORT INFORMATION
  Report Type: 
  Country: None (occurrence: None)
  Receive Date: 20060530
  Receipt Date: 20060519
  Transmission Date: 20061013
  Serious: Yes (Other)
  Sender: FDA-Public Use
  Company Number: 2006023297

PATIENT
  Age: 81 Year
  Sex: Female
  Weight: 49.8957 kg

DRUGS (5)
  1. PROCARDIA XL [Suspect]
     Indication: HYPERTENSION
     Dosage: 30 MG (30 MG, 1 IN 1 D), ORAL; SEE IMAGE
     Route: 048
     Dates: start: 20060101
  2. HYDROCHLOROTHIAZIDE [Suspect]
     Indication: OEDEMA PERIPHERAL
  3. SPIRIVA [Concomitant]
  4. IPRATROPIUM BROMIDE [Concomitant]
  5. SINGULAIR [Concomitant]

REACTIONS (6)
  - DIZZINESS [None]
  - GASTRIC DISORDER [None]
  - HYPERTENSION [None]
  - JOINT SWELLING [None]
  - OEDEMA PERIPHERAL [None]
  - PRURITUS [None]
